FAERS Safety Report 8592746-9 (Version None)
Quarter: 2012Q3

REPORT INFORMATION
  Report Type: 
  Country: None (occurrence: None)
  Receive Date: 20120814
  Receipt Date: 20120809
  Transmission Date: 20120928
  Serious: Yes (Death, Other)
  Sender: FDA-Public Use
  Company Number: JP-PFIZER INC-2012183269

PATIENT
  Age: 72 Year
  Sex: Female

DRUGS (2)
  1. XALKORI [Suspect]
     Dosage: UNK
     Route: 048
     Dates: start: 20120703
  2. XALKORI [Suspect]
     Dosage: UNK
     Route: 048
     Dates: start: 20120710

REACTIONS (1)
  - INTERSTITIAL LUNG DISEASE [None]
